FAERS Safety Report 7296226-2 (Version None)
Quarter: 2011Q1

REPORT INFORMATION
  Report Type: 
  Country: None (occurrence: None)
  Receive Date: 20110216
  Receipt Date: 20110208
  Transmission Date: 20110831
  Serious: Yes (Other)
  Sender: FDA-Public Use
  Company Number: GB-ELI_LILLY_AND_COMPANY-GB201102002321

PATIENT
  Sex: Male
  Weight: 82.2 kg

DRUGS (8)
  1. NECITUMUMAB (11F8) (LY3012211) [Suspect]
     Indication: NON-SMALL CELL LUNG CANCER
     Dosage: 800 MG, OTHER
     Dates: start: 20101223
  2. OMEPRAZOLE [Concomitant]
     Dates: start: 20101230
  3. GEMCITABINE HYDROCHLORIDE [Suspect]
     Indication: NON-SMALL CELL LUNG CANCER
     Dosage: 2508 MG, OTHER
     Dates: start: 20101223
  4. ORAMORPH SR [Concomitant]
     Dates: start: 20101207
  5. CISPLATIN [Suspect]
     Indication: NON-SMALL CELL LUNG CANCER
     Dosage: 150 MG, OTHER
     Dates: start: 20101223
  6. MORPHINE SULFATE [Concomitant]
     Route: 048
     Dates: start: 20101207
  7. ACETAMINOPHEN [Concomitant]
     Dates: start: 20101207
  8. PREDNISOLONE [Concomitant]
     Dates: start: 20110107

REACTIONS (1)
  - PULMONARY EMBOLISM [None]
